FAERS Safety Report 19818025 (Version 1)
Quarter: 2021Q3

REPORT INFORMATION
  Report Type: Report from Study
  Country: US (occurrence: US)
  Receive Date: 20210911
  Receipt Date: 20210911
  Transmission Date: 20211014
  Serious: No
  Sender: FDA-Public Use
  Company Number: NVSC2021US205510

PATIENT
  Sex: Male

DRUGS (1)
  1. ENTRESTO [Suspect]
     Active Substance: SACUBITRIL\VALSARTAN
     Indication: PRODUCT USED FOR UNKNOWN INDICATION
     Dosage: 0.5 DF(1/2 PILL IN AM AND 1/2 PILL IN PM)
     Route: 065

REACTIONS (3)
  - Wrong technique in product usage process [Unknown]
  - Bundle branch block left [Unknown]
  - Heart rate abnormal [Unknown]
